FAERS Safety Report 9393715 (Version 1)
Quarter: 2013Q3

REPORT INFORMATION
  Report Type: Spontaneous
  Country: JP (occurrence: JP)
  Receive Date: 20130710
  Receipt Date: 20130710
  Transmission Date: 20140515
  Serious: Yes (Other)
  Sender: FDA-Public Use
  Company Number: JP-B.I. PHARMACEUTICALS,INC./RIDGEFIELD-2013-BI-19711NB

PATIENT
  Age: 65 Year
  Sex: Male

DRUGS (2)
  1. TRAZENTA [Suspect]
     Indication: DIABETES MELLITUS
     Dosage: 5 MG
     Route: 048
     Dates: start: 20130427, end: 20130525
  2. LANTUS [Suspect]
     Indication: DIABETES MELLITUS
     Dosage: 14 U
     Route: 065
     Dates: start: 20130427, end: 20130525

REACTIONS (3)
  - Decreased appetite [Not Recovered/Not Resolved]
  - Jaundice cholestatic [Not Recovered/Not Resolved]
  - Bile duct stone [Not Recovered/Not Resolved]
